FAERS Safety Report 12437879 (Version 2)
Quarter: 2016Q2

REPORT INFORMATION
  Report Type: Spontaneous
  Country: FR (occurrence: FR)
  Receive Date: 20160606
  Receipt Date: 20160627
  Transmission Date: 20160815
  Serious: Yes (Hospitalization, Other)
  Sender: FDA-Public Use
  Company Number: FR-PFIZER INC-2016277452

PATIENT
  Age: 55 Year
  Sex: Female

DRUGS (1)
  1. LYRICA [Suspect]
     Active Substance: PREGABALIN
     Indication: NEURALGIA
     Dosage: 25 MG, 2X/DAY
     Route: 048
     Dates: start: 20160414, end: 20160504

REACTIONS (10)
  - Lymphocytosis [Unknown]
  - Thrombocytopenia [Recovered/Resolved]
  - Agranulocytosis [Unknown]
  - Extrapyramidal disorder [Unknown]
  - Paraesthesia [Unknown]
  - Anaemia [Unknown]
  - Dysaesthesia [Unknown]
  - Neck pain [Unknown]
  - Condition aggravated [Recovered/Resolved]
  - Neutropenia [Recovered/Resolved]

NARRATIVE: CASE EVENT DATE: 20160421
